FAERS Safety Report 8141368-2 (Version None)
Quarter: 2012Q1

REPORT INFORMATION
  Report Type: 
  Country: None (occurrence: None)
  Receive Date: 20120216
  Receipt Date: 20120203
  Transmission Date: 20120608
  Serious: Yes (Hospitalization, Other)
  Sender: FDA-Public Use
  Company Number: PHHY2012AU002270

PATIENT
  Sex: Female

DRUGS (2)
  1. CLOZARIL [Suspect]
     Indication: SCHIZOPHRENIA
     Dosage: 375 MG
     Dates: start: 20111031, end: 20120109
  2. LEVOTHYROXINE SODIUM [Concomitant]
     Dosage: 100 UG/DAY

REACTIONS (4)
  - NEUTROPENIA [None]
  - RENAL FAILURE ACUTE [None]
  - AGRANULOCYTOSIS [None]
  - LEUKOPENIA [None]
